FAERS Safety Report 9130890 (Version 2)
Quarter: 2013Q2

REPORT INFORMATION
  Report Type: Spontaneous
  Country: HR (occurrence: HR)
  Receive Date: 20130301
  Receipt Date: 20130424
  Transmission Date: 20140414
  Serious: Yes (Hospitalization, Other)
  Sender: FDA-Public Use
  Company Number: HR-JNJFOC-20130211040

PATIENT
  Age: 49 Year
  Sex: Male

DRUGS (12)
  1. RISPOLEPT CONSTA [Suspect]
     Indication: POST-TRAUMATIC STRESS DISORDER
     Route: 030
     Dates: start: 200711, end: 200810
  2. RISPOLEPT CONSTA [Suspect]
     Indication: POST-TRAUMATIC STRESS DISORDER
     Route: 030
     Dates: start: 200810, end: 2013
  3. RISPOLEPT CONSTA [Suspect]
     Indication: PSYCHOTIC DISORDER
     Route: 030
     Dates: start: 200810, end: 2013
  4. RISPOLEPT CONSTA [Suspect]
     Indication: PSYCHOTIC DISORDER
     Route: 030
     Dates: start: 200711, end: 200810
  5. RISPOLEPT [Suspect]
     Indication: PSYCHOTIC DISORDER
     Dosage: IN THE MORNING
     Route: 048
     Dates: start: 200711, end: 200810
  6. PRAZINE [Concomitant]
     Route: 065
  7. PRAZINE [Concomitant]
     Route: 065
  8. AMYZOL [Concomitant]
     Dosage: IN THE EVENING
     Route: 065
  9. NORMABEL [Concomitant]
     Route: 065
  10. AKINETON [Concomitant]
     Route: 065
  11. AKINETON [Concomitant]
     Dosage: IN THE MORNING
     Route: 065
  12. DORMICUM [Concomitant]
     Dosage: DURING THE NIGHT
     Route: 065

REACTIONS (2)
  - Psychotic disorder [Recovered/Resolved]
  - Spinal osteoarthritis [Not Recovered/Not Resolved]
